FAERS Safety Report 21602873 (Version 1)
Quarter: 2022Q4

REPORT INFORMATION
  Report Type: Spontaneous
  Country: PL (occurrence: PL)
  Receive Date: 20221116
  Receipt Date: 20221116
  Transmission Date: 20230113
  Serious: Yes (Hospitalization)
  Sender: FDA-Public Use
  Company Number: PL-002147023-NVSC2019PL055134

PATIENT
  Age: 29 Year
  Sex: Male

DRUGS (6)
  1. DOXORUBICIN [Suspect]
     Active Substance: DOXORUBICIN
     Indication: Diffuse large B-cell lymphoma
     Dosage: UNK, CYCLIC (CHOP REGIMEN)
     Route: 065
  2. CYCLOPHOSPHAMIDE [Suspect]
     Active Substance: CYCLOPHOSPHAMIDE
     Indication: Diffuse large B-cell lymphoma
     Dosage: UNK, CYCLIC (CHOP REGIMEN)
     Route: 065
  3. PREDNISONE [Suspect]
     Active Substance: PREDNISONE
     Indication: Diffuse large B-cell lymphoma
     Dosage: UNK, CYCLIC (CHOP REGIMEN)
     Route: 065
  4. VINCRISTINE [Suspect]
     Active Substance: VINCRISTINE
     Indication: Diffuse large B-cell lymphoma
     Dosage: UNK, CYCLIC (CHOP REGIMEN)
     Route: 065
  5. CYCLOPHOSPHAMIDE [Suspect]
     Active Substance: CYCLOPHOSPHAMIDE
     Indication: Diffuse large B-cell lymphoma
     Dosage: UNK, CYCLIC (CHOP)
     Route: 065
  6. IMIPENEM [Concomitant]
     Active Substance: IMIPENEM
     Indication: Antibiotic therapy
     Dosage: UNK
     Route: 065

REACTIONS (3)
  - Staphylococcal infection [Recovered/Resolved]
  - Abscess [Recovered/Resolved]
  - Inflammation [Recovered/Resolved]
